FAERS Safety Report 18156687 (Version 2)
Quarter: 2020Q3

REPORT INFORMATION
  Report Type: Report from Study
  Country: MX (occurrence: MX)
  Receive Date: 20200817
  Receipt Date: 20200820
  Transmission Date: 20201103
  Serious: Yes (Death, Hospitalization)
  Sender: FDA-Public Use
  Company Number: PHHY2018MX116332

PATIENT
  Age: 84 Year
  Sex: Male
  Weight: 62 kg

DRUGS (6)
  1. ENTRESTO [Suspect]
     Active Substance: SACUBITRIL\VALSARTAN
     Indication: CARDIAC FAILURE
     Dosage: 2 DF (50 MG), QD
     Route: 048
     Dates: start: 201711
  2. XARELTO [Concomitant]
     Active Substance: RIVAROXABAN
     Indication: COAGULOPATHY
     Dosage: 0.5 DF, QD
     Route: 065
  3. FUROSEMIDA [Concomitant]
     Active Substance: FUROSEMIDE
     Indication: SWELLING
     Dosage: 40 MG, QW
     Route: 065
  4. ENTRESTO [Suspect]
     Active Substance: SACUBITRIL\VALSARTAN
     Indication: CARDIAC DISORDER
     Dosage: 2 DF (100 MG), QD
     Route: 048
  5. HIDROCLOROTIAZIDE [Concomitant]
     Active Substance: HYDROCHLOROTHIAZIDE
     Indication: BLOOD PRESSURE ABNORMAL
     Dosage: 0.5 DF, QD
     Route: 065
  6. ENTRESTO [Suspect]
     Active Substance: SACUBITRIL\VALSARTAN
     Dosage: 1.5 DF (200 MG), BID (1 IN THE MORNING ? AT NIGHT)
     Route: 048

REACTIONS (4)
  - Wrong technique in product usage process [Unknown]
  - Cardiac failure [Not Recovered/Not Resolved]
  - Cardiac arrest [Fatal]
  - Product prescribing error [Unknown]

NARRATIVE: CASE EVENT DATE: 20200620
